FAERS Safety Report 6395524-4 (Version None)
Quarter: 2009Q4

REPORT INFORMATION
  Report Type: 
  Country: None (occurrence: None)
  Receive Date: 20091009
  Receipt Date: 20090930
  Transmission Date: 20100525
  Serious: Yes (Other)
  Sender: FDA-Public Use
  Company Number: JP-ABBOTT-09P-087-0600254-00

PATIENT
  Age: 55 Year
  Sex: Male

DRUGS (10)
  1. WARFARIN SODIUM [Suspect]
     Indication: ANGIOPLASTY
  2. HEPARIN [Concomitant]
     Indication: ANGIOPLASTY
     Dosage: NOT REPORTED
  3. ASPIRIN [Concomitant]
     Indication: ANGIOPLASTY
     Dosage: NOT REPORTED
  4. ASPIRIN [Concomitant]
  5. CLOPIDOGREL [Concomitant]
     Indication: ANGIOPLASTY
     Dosage: NOT REPORTED
  6. CLOPIDOGREL [Concomitant]
  7. ISOSORBIDE DINITRATE [Concomitant]
     Indication: ANGIOPLASTY
     Dosage: NOT REPORTED
  8. NICORANDIL [Concomitant]
     Indication: ANGIOPLASTY
     Dosage: NOT REPORTED
  9. CARVEDILOL [Concomitant]
     Indication: ANGIOPLASTY
     Dosage: NOT REPORTED
  10. ENALAPRIL MALEATE [Concomitant]
     Indication: ANGIOPLASTY
     Dosage: NOT REPORTED

REACTIONS (1)
  - PULMONARY HAEMORRHAGE [None]
